FAERS Safety Report 23040409 (Version 3)
Quarter: 2023Q4

REPORT INFORMATION
  Report Type: Report from Study
  Country: US (occurrence: US)
  Receive Date: 20231006
  Receipt Date: 20231205
  Transmission Date: 20240110
  Serious: Yes (Other)
  Sender: FDA-Public Use
  Company Number: US-BAYER-2023A135804

PATIENT
  Age: 62 Year
  Sex: Male

DRUGS (1)
  1. NUBEQA [Suspect]
     Active Substance: DAROLUTAMIDE
     Indication: Prostate cancer
     Dosage: 600 MG, BID (WITH FOOD)
     Route: 048
     Dates: start: 20230918

REACTIONS (9)
  - Weight decreased [Not Recovered/Not Resolved]
  - Oral pain [Not Recovered/Not Resolved]
  - Pain [Recovered/Resolved]
  - Oral pain [Recovering/Resolving]
  - Headache [Recovered/Resolved]
  - Fall [Unknown]
  - Face injury [Recovering/Resolving]
  - Lip injury [None]
  - Malaise [Recovering/Resolving]

NARRATIVE: CASE EVENT DATE: 20231001
